FAERS Safety Report 7939314-7 (Version None)
Quarter: 2011Q4

REPORT INFORMATION
  Report Type: 
  Country: None (occurrence: None)
  Receive Date: 20111125
  Receipt Date: 20110922
  Transmission Date: 20120403
  Serious: No
  Sender: FDA-Public Use
  Company Number: US-BAYER-2011-090205

PATIENT
  Age: 29 Year
  Sex: Male

DRUGS (2)
  1. STAXYN [Suspect]
     Indication: DISTURBANCE IN SEXUAL AROUSAL
     Dosage: 10 MG, QD
     Route: 048
     Dates: start: 20110917, end: 20110917
  2. AMINO ACIDS NOS [Concomitant]

REACTIONS (1)
  - DRUG INEFFECTIVE [None]
